FAERS Safety Report 22171659 (Version 2)
Quarter: 2023Q2

REPORT INFORMATION
  Report Type: Spontaneous
  Country: NL (occurrence: NL)
  Receive Date: 20230404
  Receipt Date: 20230413
  Transmission Date: 20230721
  Serious: Yes (Hospitalization, Other)
  Sender: FDA-Public Use
  Company Number: NL-ENDO PHARMACEUTICALS INC-2023-001339

PATIENT
  Age: 23 Year
  Sex: Male

DRUGS (5)
  1. BACLOFEN [Suspect]
     Active Substance: BACLOFEN
     Indication: Alcoholism
     Dosage: 2700 MG, UNKNOWN
     Route: 065
  2. BACLOFEN [Suspect]
     Active Substance: BACLOFEN
     Dosage: UNK UNKNOWN, UNKNOWN (IN STUDY SETTING)
     Route: 065
  3. BACLOFEN [Suspect]
     Active Substance: BACLOFEN
     Dosage: 40 MG, TID (AT THE END OF STUDY)
     Route: 065
  4. BACLOFEN [Suspect]
     Active Substance: BACLOFEN
     Dosage: 40 MG, TID (RE-INTRODUCED)
     Route: 065
  5. MIRTAZAPINE [Suspect]
     Active Substance: MIRTAZAPINE
     Indication: Product used for unknown indication
     Dosage: 330 MG, UNKNOWN
     Route: 065

REACTIONS (9)
  - Delirium [Recovered/Resolved]
  - Respiratory acidosis [Recovered/Resolved]
  - Suicide attempt [Recovered/Resolved]
  - Intentional overdose [Recovered/Resolved]
  - Drug withdrawal syndrome [Recovered/Resolved]
  - Flushing [Unknown]
  - Hyperhidrosis [Unknown]
  - Akathisia [Unknown]
  - Off label use [Unknown]
